FAERS Safety Report 6246645-8 (Version None)
Quarter: 2009Q2

REPORT INFORMATION
  Report Type: 
  Country: None (occurrence: None)
  Receive Date: 20090624
  Receipt Date: 20090624
  Transmission Date: 20091009
  Serious: No
  Sender: FDA-Public Use
  Company Number: None

PATIENT
  Age: 59 Year
  Sex: Female
  Weight: 54.4316 kg

DRUGS (1)
  1. MIRALAX [Suspect]
     Indication: IRRITABLE BOWEL SYNDROME
     Dosage: 1 CAPFUL 3 X WEEK PO
     Route: 048

REACTIONS (12)
  - ARTHRALGIA [None]
  - CHEST PAIN [None]
  - DEHYDRATION [None]
  - DRY MOUTH [None]
  - FATIGUE [None]
  - HYPOAESTHESIA [None]
  - HYPOAESTHESIA ORAL [None]
  - NERVOUS SYSTEM DISORDER [None]
  - PERIPHERAL COLDNESS [None]
  - PHARYNGEAL HYPOAESTHESIA [None]
  - POLLAKIURIA [None]
  - THIRST [None]
